FAERS Safety Report 25767787 (Version 1)
Quarter: 2025Q3

REPORT INFORMATION
  Report Type: Spontaneous
  Country: US (occurrence: US)
  Receive Date: 20250905
  Receipt Date: 20250905
  Transmission Date: 20251021
  Serious: No
  Sender: PFIZER
  Company Number: US-PFIZER INC-202500175504

PATIENT
  Age: 56 Year
  Sex: Female

DRUGS (18)
  1. IBRANCE [Suspect]
     Active Substance: PALBOCICLIB
     Dates: start: 20250415
  2. ADVAIR HFA [Concomitant]
     Active Substance: FLUTICASONE PROPIONATE\SALMETEROL XINAFOATE
  3. ALBUTEROL SULFATE [Concomitant]
     Active Substance: ALBUTEROL SULFATE
  4. ALPRAZOLAM [Concomitant]
     Active Substance: ALPRAZOLAM
  5. ANASTROZOLE [Concomitant]
     Active Substance: ANASTROZOLE
  6. BOTOX [Concomitant]
     Active Substance: ONABOTULINUMTOXINA
  7. DICLOFENAC [Concomitant]
     Active Substance: DICLOFENAC
  8. DULOXETINE [Concomitant]
     Active Substance: DULOXETINE
  9. FLONASE [Concomitant]
     Active Substance: FLUTICASONE PROPIONATE
  10. IBUPROFEN [Concomitant]
     Active Substance: IBUPROFEN
  11. IPRATROPIUM [Concomitant]
     Active Substance: IPRATROPIUM
  12. VITAMINS [Concomitant]
     Active Substance: VITAMINS
  13. OS CAL [Concomitant]
  14. OXCARBAZEPINE [Concomitant]
     Active Substance: OXCARBAZEPINE
  15. PROCHLORPERAZINE MALEATE [Concomitant]
     Active Substance: PROCHLORPERAZINE MALEATE
  16. TOPIRAMATE [Concomitant]
     Active Substance: TOPIRAMATE
  17. VITAMIN E [Concomitant]
     Active Substance: .ALPHA.-TOCOPHEROL
  18. ZOLEDRONIC [Concomitant]
     Active Substance: ZOLEDRONIC ACID

REACTIONS (2)
  - Fatigue [Unknown]
  - Alopecia [Unknown]
